FAERS Safety Report 4980384-6 (Version None)
Quarter: 2006Q2

REPORT INFORMATION
  Report Type: 
  Country: None (occurrence: None)
  Receive Date: 20060424
  Receipt Date: 20060406
  Transmission Date: 20061013
  Serious: Yes (Hospitalization)
  Sender: FDA-Public Use
  Company Number: US-BRISTOL-MYERS SQUIBB COMPANY-13339098

PATIENT
  Age: 49 Year
  Sex: Female

DRUGS (10)
  1. ERBITUX [Suspect]
     Indication: LUNG CANCER METASTATIC
     Dosage: INITIATED ON 13-MAR-2006.
     Route: 042
     Dates: start: 20060403, end: 20060403
  2. CARBOPLATIN [Suspect]
     Indication: LUNG CANCER METASTATIC
     Dosage: INITIATED ON 13-MAR-2006.
     Route: 042
     Dates: start: 20060403, end: 20060403
  3. DOCETAXEL [Suspect]
     Indication: LUNG CANCER METASTATIC
     Dosage: INITIATED ON 13-MAR-2006.
     Route: 042
     Dates: start: 20060403, end: 20060403
  4. CYCLOBENZAPRINE HCL [Concomitant]
     Dates: start: 20060302
  5. DEXAMETHASONE [Concomitant]
     Dates: start: 20060101
  6. FENTANYL [Concomitant]
     Dates: start: 20060101
  7. METOCLOPRAMIDE [Concomitant]
     Dates: start: 20060303
  8. ONDANSETRON [Concomitant]
     Dates: start: 20060223
  9. PERCOCET [Concomitant]
     Dates: start: 20060118
  10. SENNA [Concomitant]
     Dates: start: 20060101

REACTIONS (2)
  - PNEUMONIA [None]
  - PULMONARY EMBOLISM [None]
